FAERS Safety Report 5822301-2 (Version None)
Quarter: 2008Q3

REPORT INFORMATION
  Report Type: 
  Country: None (occurrence: None)
  Receive Date: 20080725
  Receipt Date: 20080407
  Transmission Date: 20090109
  Serious: No
  Sender: FDA-Public Use
  Company Number: US-AMGEN-KDL267546

PATIENT
  Sex: Female
  Weight: 52.2 kg

DRUGS (6)
  1. PROCRIT [Suspect]
     Indication: RENAL FAILURE CHRONIC
     Dates: start: 20040701
  2. PROGRAF [Concomitant]
  3. CELLCEPT [Concomitant]
  4. PREDNISONE TAB [Concomitant]
  5. METOPROLOL TARTRATE [Concomitant]
  6. BACTRIM [Concomitant]

REACTIONS (1)
  - THERAPEUTIC RESPONSE DECREASED [None]
